FAERS Safety Report 11086282 (Version 2)
Quarter: 2015Q2

REPORT INFORMATION
  Report Type: Spontaneous
  Country: GR (occurrence: GR)
  Receive Date: 20150503
  Receipt Date: 20150514
  Transmission Date: 20150821
  Serious: Yes (Other)
  Sender: FDA-Public Use
  Company Number: GR-ROCHE-1571328

PATIENT
  Sex: Female
  Weight: 60 kg

DRUGS (4)
  1. ACTONEL [Concomitant]
     Active Substance: RISEDRONATE SODIUM
     Route: 048
  2. ROACTEMRA [Suspect]
     Active Substance: TOCILIZUMAB
     Indication: RHEUMATOID ARTHRITIS
     Dosage: STARTING DOSE 8MG/KG, 480MG TOTAL MONTH DOSE
     Route: 042
     Dates: start: 20131031
  3. PREZOLON [Concomitant]
     Active Substance: PREDNISOLONE
     Route: 048
  4. ARAVA [Concomitant]
     Active Substance: LEFLUNOMIDE
     Route: 048

REACTIONS (1)
  - Lung neoplasm malignant [Unknown]
